FAERS Safety Report 4382797-2 (Version None)
Quarter: 2004Q2

REPORT INFORMATION
  Report Type: 
  Country: None (occurrence: None)
  Receive Date: 20040617
  Receipt Date: 20030623
  Transmission Date: 20050107
  Serious: Yes (Other)
  Sender: FDA-Public Use
  Company Number: 2003IM000692

PATIENT
  Age: 73 Year
  Sex: Male
  Weight: 95 kg

DRUGS (18)
  1. INTERFERON GAMMA 1-B [Suspect]
     Indication: INTERSTITIAL LUNG DISEASE
     Dosage: 200 UG; TIW; SUBCUTANEOUS
     Route: 058
     Dates: start: 20021114, end: 20030501
  2. ALBUTEROL [Concomitant]
  3. ATROVENT [Concomitant]
  4. NEXIUM [Concomitant]
  5. HUMULIN 70/30 [Concomitant]
  6. IMDUR [Concomitant]
  7. REGLAN [Concomitant]
  8. PREDNISONE [Concomitant]
  9. SEREVENT [Concomitant]
  10. TRAZODONE HCL [Concomitant]
  11. GEMFIBROZIL [Concomitant]
  12. ZOCOR [Concomitant]
  13. LASIX [Concomitant]
  14. ASPIRIN [Concomitant]
  15. LORAZEPAM [Concomitant]
  16. AMBIEN [Concomitant]
  17. DARVOCET [Concomitant]
  18. LEXAPRO [Concomitant]

REACTIONS (5)
  - BLADDER CANCER [None]
  - MYOCARDIAL INFARCTION [None]
  - PYREXIA [None]
  - RENAL CYST [None]
  - TRANSITIONAL CELL CARCINOMA [None]
